FAERS Safety Report 9216308 (Version 2)
Quarter: 2013Q2

REPORT INFORMATION
  Report Type: Spontaneous
  Country: CH (occurrence: CH)
  Receive Date: 20130408
  Receipt Date: 20130410
  Transmission Date: 20140414
  Serious: Yes (Other)
  Sender: FDA-Public Use
  Company Number: PHHY2013CH032526

PATIENT
  Sex: 0

DRUGS (8)
  1. GILENYA [Suspect]
     Dosage: 0.5 MG, QD
     Dates: start: 20130215
  2. METFIN [Concomitant]
     Dosage: 500 MG, UNK
  3. PANTOPRAZOL [Concomitant]
     Dosage: 40 MG, UNK
  4. OPTIFEN [Concomitant]
  5. LASIX [Concomitant]
     Dosage: 40 MG, UNK
  6. AMLODIPIN [Concomitant]
     Dosage: 5 MG, UNK
  7. VITAMIN B12 [Concomitant]
  8. METHADON [Concomitant]
     Dosage: 17.5 MG, QD

REACTIONS (8)
  - Multiple sclerosis relapse [Not Recovered/Not Resolved]
  - Central nervous system lesion [Unknown]
  - Epilepsy [Unknown]
  - Vertigo [Unknown]
  - Visual field defect [Not Recovered/Not Resolved]
  - Disturbance in attention [Not Recovered/Not Resolved]
  - Gamma-glutamyltransferase increased [Unknown]
  - Electroencephalogram abnormal [Unknown]
